FAERS Safety Report 9330337 (Version 2)
Quarter: 2013Q2

REPORT INFORMATION
  Report Type: Spontaneous
  Country: ZA (occurrence: ZA)
  Receive Date: 20130605
  Receipt Date: 20130626
  Transmission Date: 20140414
  Serious: Yes (Other)
  Sender: FDA-Public Use
  Company Number: ZA-ROCHE-1231131

PATIENT
  Sex: Female
  Weight: 48 kg

DRUGS (1)
  1. ROACCUTANE [Suspect]
     Indication: ACNE
     Dosage: 1MG/KILOGRAM
     Route: 065
     Dates: end: 201210

REACTIONS (1)
  - Rash erythematous [Not Recovered/Not Resolved]
